FAERS Safety Report 6505187-2 (Version None)
Quarter: 2009Q4

REPORT INFORMATION
  Report Type: 
  Country: None (occurrence: None)
  Receive Date: 20091218
  Receipt Date: 20091207
  Transmission Date: 20100525
  Serious: Yes (Hospitalization)
  Sender: FDA-Public Use
  Company Number: MY-JNJFOC-20091205105

PATIENT
  Age: 44 Year
  Sex: Female

DRUGS (2)
  1. ITRACONAZOLE [Suspect]
     Indication: VAGINAL DISCHARGE
     Route: 048
  2. METHADONE HYDROCHLORIDE [Interacting]
     Indication: DRUG DEPENDENCE
     Route: 048

REACTIONS (4)
  - CHEST DISCOMFORT [None]
  - DRUG INTERACTION [None]
  - SYNCOPE [None]
  - TORSADE DE POINTES [None]
